FAERS Safety Report 22228929 (Version 1)
Quarter: 2023Q2

REPORT INFORMATION
  Report Type: Spontaneous
  Country: US (occurrence: None)
  Receive Date: 20230418
  Receipt Date: 20230418
  Transmission Date: 20230722
  Serious: No
  Sender: FDA-Public Use
  Company Number: None

PATIENT
  Age: 28 Year
  Sex: Female

DRUGS (1)
  1. MIRENA [Suspect]
     Active Substance: LEVONORGESTREL

REACTIONS (4)
  - Complication of device insertion [None]
  - Vulvovaginal pain [None]
  - Chest discomfort [None]
  - Presyncope [None]

NARRATIVE: CASE EVENT DATE: 20230418
